FAERS Safety Report 6346915-9 (Version None)
Quarter: 2009Q3

REPORT INFORMATION
  Report Type: 
  Country: None (occurrence: None)
  Receive Date: 20090909
  Receipt Date: 20090909
  Transmission Date: 20100115
  Serious: Yes (Death)
  Sender: FDA-Public Use
  Company Number: None

PATIENT
  Age: 56 Year
  Sex: Male
  Weight: 72.5755 kg

DRUGS (2)
  1. CYMBALTA [Suspect]
     Dosage: 1 TABLET DAILY PO
     Route: 048
     Dates: start: 20081231, end: 20090824
  2. ACTOS [Suspect]
     Dosage: 1 TABLET DAILY PO
     Route: 048
     Dates: start: 20090515

REACTIONS (5)
  - BLOOD PRESSURE ABNORMAL [None]
  - CARDIAC ARREST [None]
  - DIARRHOEA [None]
  - DIZZINESS [None]
  - SYNCOPE [None]
